FAERS Safety Report 4687823-9 (Version None)
Quarter: 2005Q2

REPORT INFORMATION
  Report Type: 
  Country: None (occurrence: None)
  Receive Date: 20050610
  Receipt Date: 20050527
  Transmission Date: 20051028
  Serious: Yes (Other)
  Sender: FDA-Public Use
  Company Number: ES-JNJFOC-20050602636

PATIENT
  Sex: Female

DRUGS (1)
  1. ADOLONTA [Suspect]
     Indication: POSTOPERATIVE ANALGESIA
     Route: 065

REACTIONS (1)
  - ILEUS PARALYTIC [None]
